FAERS Safety Report 12393812 (Version 2)
Quarter: 2016Q3

REPORT INFORMATION
  Report Type: Spontaneous
  Country: JP (occurrence: JP)
  Receive Date: 20160523
  Receipt Date: 20160712
  Transmission Date: 20161109
  Serious: Yes (Other)
  Sender: FDA-Public Use
  Company Number: PHJP2016JP012800

PATIENT
  Age: 73 Year
  Sex: Male
  Weight: 62 kg

DRUGS (11)
  1. EXELON PATCH [Suspect]
     Active Substance: RIVASTIGMINE
     Dosage: 6.9 MG, QD (PATCH 7.5, RIVASTIGMINE BASE 13.5 MG)
     Route: 062
     Dates: start: 20141028, end: 20141124
  2. TASMOLIN [Concomitant]
     Active Substance: BIPERIDEN
     Indication: PARKINSONISM
     Dosage: 1 MG, TID
     Route: 048
     Dates: start: 20140902, end: 20151030
  3. ALLOPURINOL. [Concomitant]
     Active Substance: ALLOPURINOL
     Indication: PRODUCT USED FOR UNKNOWN INDICATION
     Dosage: 200 MG, QD
     Route: 048
  4. EXELON PATCH [Suspect]
     Active Substance: RIVASTIGMINE
     Dosage: 4.6 MG, QD (PATCH 5, RIVASTIGMINE BASE 9 MG)
     Route: 062
     Dates: start: 20140930, end: 20141027
  5. BUFFERIN [Concomitant]
     Active Substance: ASPIRIN
     Indication: PRODUCT USED FOR UNKNOWN INDICATION
     Dosage: 81 MG, QD
     Route: 048
     Dates: start: 20140902
  6. ZOPICLONE [Concomitant]
     Active Substance: ZOPICLONE
     Indication: PRODUCT USED FOR UNKNOWN INDICATION
     Dosage: 7.5 MG, QD
     Route: 048
     Dates: start: 20140902
  7. ZYPREXA [Concomitant]
     Active Substance: OLANZAPINE
     Indication: SEDATION
     Dosage: 10 MG, QD
     Route: 048
     Dates: start: 20141025
  8. EXELON PATCH [Suspect]
     Active Substance: RIVASTIGMINE
     Dosage: 9.5 MG, QD (PATCH10, RIVASTIGMINE BASE 18 MG)
     Route: 062
     Dates: start: 20141125, end: 20160420
  9. EXELON PATCH [Suspect]
     Active Substance: RIVASTIGMINE
     Indication: DEMENTIA ALZHEIMER^S TYPE
     Dosage: 1.9 MG, QD (PATCH2.5, RIVASTIGMINE BASE 4.5 MG)
     Route: 062
     Dates: start: 20140902, end: 20140929
  10. RISPERIDONE. [Concomitant]
     Active Substance: RISPERIDONE
     Indication: SEDATION
     Dosage: 1 MG, TID
     Route: 048
     Dates: start: 20140902
  11. LEVOTOMIN [Concomitant]
     Active Substance: LEVOMEPROMAZINE
     Indication: PRODUCT USED FOR UNKNOWN INDICATION
     Dosage: 10 MG, QD
     Route: 048
     Dates: start: 20140902

REACTIONS (10)
  - Loss of consciousness [Unknown]
  - Blood pressure diastolic decreased [Unknown]
  - Atrial fibrillation [Unknown]
  - Sinus node dysfunction [Recovered/Resolved]
  - Heart rate irregular [Unknown]
  - Pulse absent [Unknown]
  - Oxygen saturation decreased [Unknown]
  - Supraventricular tachycardia [Unknown]
  - Sinus arrest [Unknown]
  - Bradycardia [Unknown]

NARRATIVE: CASE EVENT DATE: 20160419
